FAERS Safety Report 11237693 (Version 4)
Quarter: 2017Q3

REPORT INFORMATION
  Report Type: Spontaneous
  Country: US (occurrence: US)
  Receive Date: 20150703
  Receipt Date: 20170720
  Transmission Date: 20171127
  Serious: Yes (Hospitalization)
  Sender: FDA-Public Use
  Company Number: US-JNJFOC-20150619355

PATIENT
  Age: 66 Year
  Sex: Male
  Weight: 68.04 kg

DRUGS (11)
  1. PLAVIX [Interacting]
     Active Substance: CLOPIDOGREL BISULFATE
     Indication: MYOCARDIAL INFARCTION
     Route: 065
  2. CLARITIN [Concomitant]
     Active Substance: LORATADINE
     Route: 065
  3. INTELENCE [Suspect]
     Active Substance: ETRAVIRINE
     Indication: HIV INFECTION
     Route: 048
  4. TRUVADA [Concomitant]
     Active Substance: EMTRICITABINE\TENOFOVIR DISOPROXIL FUMARATE
     Indication: HIV INFECTION
     Dosage: DOSE: 200/300 MG
     Route: 048
     Dates: start: 2007
  5. OXYCONTIN [Concomitant]
     Active Substance: OXYCODONE HYDROCHLORIDE
     Route: 065
  6. ASPIRIN. [Concomitant]
     Active Substance: ASPIRIN
     Route: 065
  7. QVAR [Concomitant]
     Active Substance: BECLOMETHASONE DIPROPIONATE
     Dosage: 80MCG
     Route: 065
  8. BECONASE AQ [Concomitant]
     Active Substance: BECLOMETHASONE DIPROPIONATE MONOHYDRATE
     Route: 065
  9. OXYCODONE [Concomitant]
     Active Substance: OXYCODONE
     Dosage: TWICE A DAY
     Route: 065
  10. ISENTRESS [Concomitant]
     Active Substance: RALTEGRAVIR POTASSIUM
     Indication: HIV INFECTION
     Route: 048
  11. SALMETEROL XINAFOATE [Concomitant]
     Active Substance: SALMETEROL XINAFOATE
     Dosage: 50MCG
     Route: 065

REACTIONS (21)
  - Spinal fusion surgery [Unknown]
  - Drug interaction [Unknown]
  - Intervertebral disc injury [Recovered/Resolved]
  - Pneumonia pseudomonal [Recovered/Resolved]
  - Connective tissue disorder [Unknown]
  - Frustration tolerance decreased [Not Recovered/Not Resolved]
  - Biliary tract disorder [Recovering/Resolving]
  - Asthenia [Unknown]
  - CD4 lymphocytes decreased [Unknown]
  - Bronchopulmonary aspergillosis [Recovered/Resolved]
  - Fall [Recovered/Resolved]
  - Hepatic steatosis [Unknown]
  - Myocardial infarction [Recovered/Resolved]
  - Pancreatic carcinoma [Unknown]
  - Product physical issue [Unknown]
  - Product container issue [Unknown]
  - Pancreatic cyst [Recovering/Resolving]
  - Dislocation of vertebra [Recovered/Resolved]
  - Body height decreased [Recovered/Resolved]
  - Pain [Unknown]
  - Haemorrhage [Unknown]

NARRATIVE: CASE EVENT DATE: 2006
